FAERS Safety Report 6017415-0 (Version None)
Quarter: 2008Q4

REPORT INFORMATION
  Report Type: 
  Country: None (occurrence: None)
  Receive Date: 20081223
  Receipt Date: 20081215
  Transmission Date: 20090506
  Serious: Yes (Other)
  Sender: FDA-Public Use
  Company Number: PHEH2005US04882

PATIENT
  Sex: Male
  Weight: 96.1 kg

DRUGS (11)
  1. ZOMETA [Suspect]
     Indication: MULTIPLE MYELOMA
     Dosage: 4 MG Q21 DAYS
     Dates: start: 20030127, end: 20050107
  2. AREDIA [Suspect]
  3. GLUCOPHAGE [Concomitant]
     Dosage: 1 G, BID
     Dates: start: 20000101
  4. NORVASC [Concomitant]
     Dosage: 5 MG, QD
     Dates: start: 20000101
  5. MAXZIDE [Concomitant]
     Dosage: 37.5/25 MG, QD
     Dates: start: 20010101
  6. MONOPRIL [Concomitant]
     Dosage: 40 MG, QD
     Dates: start: 20000101
  7. ALOCRIL [Concomitant]
     Dosage: 2 %, UNK
     Dates: start: 20020101
  8. GLUCOTROL XL [Concomitant]
     Dosage: 10 MG, UNK
     Dates: start: 20000101
  9. PRANDIN [Concomitant]
     Dosage: 2 MG, UNK
     Dates: start: 20010101
  10. METFORMIN HYDROCHLORIDE [Concomitant]
     Dosage: 1000 MG, UNK
     Dates: start: 20020101
  11. PERCOCET [Concomitant]
     Dosage: 10/650 MG, UNK
     Dates: start: 20020101

REACTIONS (8)
  - BIOPSY [None]
  - BONE DEBRIDEMENT [None]
  - DENTAL OPERATION [None]
  - HYPERPLASIA [None]
  - INFLAMMATION [None]
  - OSTEONECROSIS [None]
  - TOOTH DISORDER [None]
  - TOOTH EXTRACTION [None]
